FAERS Safety Report 25188112 (Version 1)
Quarter: 2025Q2

REPORT INFORMATION
  Report Type: Spontaneous
  Country: US (occurrence: US)
  Receive Date: 20250411
  Receipt Date: 20250411
  Transmission Date: 20250716
  Serious: No
  Sender: TAKEDA
  Company Number: US-TAKEDA-2025TUS035053

PATIENT

DRUGS (4)
  1. ENTYVIO [Suspect]
     Active Substance: VEDOLIZUMAB
     Indication: Crohn^s disease
  2. OMEPRAZOLE [Concomitant]
     Active Substance: OMEPRAZOLE
  3. CITALOPRAM [Concomitant]
     Active Substance: CITALOPRAM
  4. AMLODIPINE BESYLATE [Concomitant]
     Active Substance: AMLODIPINE BESYLATE

REACTIONS (2)
  - No adverse event [Unknown]
  - Product dose omission issue [Unknown]
